FAERS Safety Report 11700510 (Version 1)
Quarter: 2015Q4

REPORT INFORMATION
  Report Type: Spontaneous
  Country: US (occurrence: US)
  Receive Date: 20151105
  Receipt Date: 20151105
  Transmission Date: 20160304
  Serious: Yes (Death)
  Sender: FDA-Public Use
  Company Number: US-ACTAVIS-2015-23085

PATIENT
  Age: 34 Year
  Sex: Male

DRUGS (3)
  1. ATIVAN [Suspect]
     Active Substance: LORAZEPAM
     Indication: DEPRESSION
     Dosage: 1 MG, TWICE VIA INJECTION
     Route: 065
     Dates: start: 20151019, end: 20151019
  2. ATIVAN [Suspect]
     Active Substance: LORAZEPAM
     Indication: PAIN
     Dosage: 1 MG, ONCE EVERY 8 HOURS, TOOK FOUR FROM 19-OCT-2015 UNTIL 20-OCT-2015
     Route: 048
     Dates: start: 20151019, end: 20151020
  3. MORPHINE SULFATE (AELLC) [Suspect]
     Active Substance: MORPHINE SULFATE
     Indication: PAIN
     Dosage: 60 MG BID
     Route: 048
     Dates: start: 2015, end: 20151016

REACTIONS (6)
  - Gun shot wound [Fatal]
  - Pain [Unknown]
  - Drug dose omission [Unknown]
  - Completed suicide [Fatal]
  - Drug withdrawal syndrome [Unknown]
  - Depression [Unknown]

NARRATIVE: CASE EVENT DATE: 20151016
